FAERS Safety Report 6912122-1 (Version None)
Quarter: 2010Q3

REPORT INFORMATION
  Report Type: 
  Country: None (occurrence: None)
  Receive Date: 20100806
  Receipt Date: 20080107
  Transmission Date: 20110219
  Serious: Yes (Other)
  Sender: FDA-Public Use
  Company Number: US-PFIZER INC-2008002234

PATIENT
  Sex: Female
  Weight: 88.45 kg

DRUGS (3)
  1. DILANTIN [Suspect]
     Indication: CONVULSION
  2. PHENYTOIN SODIUM [Suspect]
     Indication: CONVULSION
  3. VITAMIN TAB [Concomitant]

REACTIONS (1)
  - CONVULSION [None]
